FAERS Safety Report 19205589 (Version 1)
Quarter: 2021Q2

REPORT INFORMATION
  Report Type: Spontaneous
  Country: US (occurrence: US)
  Receive Date: 20210503
  Receipt Date: 20210503
  Transmission Date: 20210717
  Serious: No
  Sender: FDA-Public Use
  Company Number: US-FARMAPROD-202104-0501

PATIENT
  Sex: Male

DRUGS (13)
  1. LISINOPRIL. [Concomitant]
     Active Substance: LISINOPRIL
  2. OXERVATE [Suspect]
     Active Substance: CENEGERMIN-BKBJ
     Indication: NEUROTROPHIC KERATOPATHY
     Route: 047
     Dates: start: 20210308
  3. ACICLOVIR [Concomitant]
     Active Substance: ACYCLOVIR
  4. VITAMINE C [Concomitant]
     Active Substance: ASCORBIC ACID
  5. PRAVASTATIN. [Concomitant]
     Active Substance: PRAVASTATIN
  6. VITAMIN D3 [Concomitant]
     Active Substance: CHOLECALCIFEROL
  7. HYDROXYCHLOROQUINE SULFATE. [Concomitant]
     Active Substance: HYDROXYCHLOROQUINE SULFATE
  8. VITAMINE B12 [Concomitant]
     Active Substance: CYANOCOBALAMIN
  9. NADOLOL. [Concomitant]
     Active Substance: NADOLOL
  10. AMLODIPINE BESYLATE. [Concomitant]
     Active Substance: AMLODIPINE BESYLATE
  11. TAMSULOSIN HYDROCHLORIDE. [Concomitant]
     Active Substance: TAMSULOSIN HYDROCHLORIDE
  12. GLIPIZIDE. [Concomitant]
     Active Substance: GLIPIZIDE
  13. METFORMIN [Concomitant]
     Active Substance: METFORMIN HYDROCHLORIDE
     Dosage: EXTENDED RELEASE GASTRIC

REACTIONS (1)
  - Ocular discomfort [Unknown]
